FAERS Safety Report 7374545-9 (Version None)
Quarter: 2011Q1

REPORT INFORMATION
  Report Type: 
  Country: None (occurrence: None)
  Receive Date: 20110325
  Receipt Date: 20100305
  Transmission Date: 20110831
  Serious: No
  Sender: FDA-Public Use
  Company Number: US-MYLANLABS-2010S1003790

PATIENT
  Age: 42 Year
  Sex: Female
  Weight: 94.35 kg

DRUGS (13)
  1. FENTANYL-100 [Suspect]
     Indication: BACK PAIN
     Dosage: Q48H
     Route: 062
     Dates: start: 20100210, end: 20100218
  2. COUMADIN [Concomitant]
     Route: 048
  3. NEURONTIN [Concomitant]
     Route: 048
  4. METHOTREXATE [Concomitant]
     Route: 048
  5. DULCOLAX [Concomitant]
     Route: 048
  6. FENTANYL-100 [Suspect]
     Dosage: Q48H
     Route: 062
     Dates: start: 20100223
  7. FENTANYL-100 [Suspect]
     Dosage: Q48H
     Route: 062
     Dates: start: 20100218
  8. KEPPRA [Concomitant]
     Route: 048
  9. HYDROCODONE BITARTRATE AND ACETAMINOPHEN [Concomitant]
     Dosage: 10MG/325MG PRN
     Route: 048
  10. BACLOFEN [Concomitant]
     Route: 048
  11. PLAQUENIL [Concomitant]
     Route: 048
  12. PRILOSEC [Concomitant]
     Route: 048
  13. FOLIC ACID [Concomitant]
     Route: 048

REACTIONS (2)
  - OEDEMA [None]
  - WEIGHT INCREASED [None]
